FAERS Safety Report 5524513-4 (Version None)
Quarter: 2007Q4

REPORT INFORMATION
  Report Type: 
  Country: None (occurrence: None)
  Receive Date: 20071122
  Receipt Date: 20071119
  Transmission Date: 20080405
  Serious: Yes (Other)
  Sender: FDA-Public Use
  Company Number: PHMT2007CA02247

PATIENT
  Age: 49 Year
  Sex: Male

DRUGS (8)
  1. SANDOSTATIN LAR [Suspect]
     Indication: ACROMEGALY
     Dosage: 20 MG, QMO
     Route: 030
     Dates: start: 20071108
  2. ADVAIR DISKUS 100/50 [Concomitant]
  3. BACLOFEN [Concomitant]
  4. ACETYLSALICYLIC ACID SRT [Concomitant]
  5. CODEINE SUL TAB [Concomitant]
  6. FLONASE [Concomitant]
  7. OTRIVIN [Concomitant]
  8. VENTOLIN [Concomitant]

REACTIONS (15)
  - ASTHENIA [None]
  - BLOOD CREATININE DECREASED [None]
  - BLOOD PRESSURE INCREASED [None]
  - DIZZINESS [None]
  - FATIGUE [None]
  - HEADACHE [None]
  - HEART RATE INCREASED [None]
  - LYMPHOCYTE COUNT [None]
  - MEAN PLATELET VOLUME DECREASED [None]
  - MOVEMENT DISORDER [None]
  - MUSCULAR WEAKNESS [None]
  - NAUSEA [None]
  - PAIN [None]
  - PALPITATIONS [None]
  - SPINAL COLUMN STENOSIS [None]
